FAERS Safety Report 24177097 (Version 1)
Quarter: 2024Q3

REPORT INFORMATION
  Report Type: Spontaneous
  Country: ZA (occurrence: None)
  Receive Date: 20240806
  Receipt Date: 20240806
  Transmission Date: 20241016
  Serious: Yes (Hospitalization)
  Sender: ASTRAZENECA
  Company Number: 2024A174357

PATIENT
  Age: 56 Year
  Sex: Male

DRUGS (7)
  1. DAPAGLIFLOZIN [Suspect]
     Active Substance: DAPAGLIFLOZIN
     Route: 048
  2. DIAZEPAM [Concomitant]
     Active Substance: DIAZEPAM
  3. PREGABALIN [Concomitant]
     Active Substance: PREGABALIN
  4. PAROXETINE HYDROCHLORIDE [Concomitant]
     Active Substance: PAROXETINE HYDROCHLORIDE\PAROXETINE HYDROCHLORIDE ANHYDROUS
  5. GLICLAZIDE [Concomitant]
     Active Substance: GLICLAZIDE
  6. CELECOXIB [Concomitant]
     Active Substance: CELECOXIB
  7. LIPOGEN [Concomitant]

REACTIONS (1)
  - Spinal disorder [Unknown]
